FAERS Safety Report 4685591-8 (Version None)
Quarter: 2005Q2

REPORT INFORMATION
  Report Type: 
  Country: None (occurrence: None)
  Receive Date: 20050608
  Receipt Date: 20050603
  Transmission Date: 20051028
  Serious: Yes (Other)
  Sender: FDA-Public Use
  Company Number: US-ABBOTT-05P-163-0302262-00

PATIENT
  Sex: Female
  Weight: 104.5 kg

DRUGS (5)
  1. HUMIRA [Suspect]
     Indication: RHEUMATOID ARTHRITIS
     Route: 058
     Dates: start: 20040101
  2. RABEPRAZOLE SODIUM [Concomitant]
     Indication: GASTRIC DISORDER
     Dosage: 40 MG Q AM, 300 MG Q PM
     Route: 048
  3. BUPROPION HYDROCHLORIDE [Concomitant]
     Indication: DEPRESSION
     Route: 048
  4. BUPROPION HYDROCHLORIDE [Concomitant]
     Indication: ANXIETY
  5. VICODIN [Concomitant]
     Indication: PAIN
     Route: 048

REACTIONS (3)
  - BREAST MASS [None]
  - RASH [None]
  - SINUSITIS [None]
